FAERS Safety Report 9964182 (Version 2)
Quarter: 2014Q1

REPORT INFORMATION
  Report Type: Spontaneous
  Country: US (occurrence: US)
  Receive Date: 20140305
  Receipt Date: 20140331
  Transmission Date: 20141002
  Serious: Yes (Hospitalization)
  Sender: FDA-Public Use
  Company Number: US-B.I. PHARMACEUTICALS,INC./RIDGEFIELD-2014-BI-09451BP

PATIENT
  Age: 89 Year
  Sex: Female
  Weight: 58.06 kg

DRUGS (11)
  1. PRADAXA [Suspect]
     Indication: ATRIAL FIBRILLATION
     Route: 065
     Dates: start: 20110218, end: 20110303
  2. COREG [Concomitant]
     Dosage: 25 MG
     Route: 065
  3. NORVASC [Concomitant]
     Dosage: 5 MG
     Route: 065
  4. CREON [Concomitant]
     Dosage: 12000 U
     Route: 065
  5. SPIRONOLACTONE [Concomitant]
     Dosage: 25 MG
     Route: 065
  6. FUROSEMIDE [Concomitant]
     Dosage: 20 MG
     Route: 065
  7. FENTANYL PATCH [Concomitant]
     Route: 065
  8. DILAUDID [Concomitant]
     Dosage: 4 MG
     Route: 065
  9. ASPIRIN [Concomitant]
     Dosage: 81 MG
     Route: 065
  10. ATIVAN [Concomitant]
     Dosage: 1 MG
     Route: 065
  11. GABAPENTIN [Concomitant]
     Dosage: 300 MG
     Route: 065

REACTIONS (1)
  - Gastrointestinal haemorrhage [Unknown]
